FAERS Safety Report 17628205 (Version 2)
Quarter: 2020Q2

REPORT INFORMATION
  Report Type: Spontaneous
  Country: MX (occurrence: MX)
  Receive Date: 20200406
  Receipt Date: 20200409
  Transmission Date: 20200713
  Serious: Yes (Death, Other)
  Sender: FDA-Public Use
  Company Number: MX-B.I. PHARMACEUTICALS,INC./RIDGEFIELD-2020-BI-017941

PATIENT
  Age: 65 Year
  Sex: Male

DRUGS (2)
  1. MICARDIS [Suspect]
     Active Substance: TELMISARTAN
     Indication: HYPERTENSION
     Route: 048
  2. SECOTEX [Suspect]
     Active Substance: TAMSULOSIN
     Indication: PRODUCT USED FOR UNKNOWN INDICATION
     Route: 065

REACTIONS (5)
  - Metabolic acidosis [Fatal]
  - Cerebral ischaemia [Fatal]
  - Cardio-respiratory arrest [Fatal]
  - Dyslexia [Fatal]
  - Oedema peripheral [Fatal]

NARRATIVE: CASE EVENT DATE: 20200206
